FAERS Safety Report 10493100 (Version 2)
Quarter: 2015Q3

REPORT INFORMATION
  Report Type: Spontaneous
  Country: US (occurrence: US)
  Receive Date: 20141002
  Receipt Date: 20150910
  Transmission Date: 20151125
  Serious: No
  Sender: FDA-Public Use
  Company Number: US-GLAXOSMITHKLINE-A1079030A

PATIENT
  Age: 56 Year
  Sex: Male

DRUGS (4)
  1. ADVAIR DISKUS [Suspect]
     Active Substance: FLUTICASONE PROPIONATE\SALMETEROL XINAFOATE
     Indication: EMPHYSEMA
     Dosage: 250/50 MCG.UNK, U
     Route: 065
     Dates: start: 201407
  2. ADVAIR DISKUS [Suspect]
     Active Substance: FLUTICASONE PROPIONATE\SALMETEROL XINAFOATE
     Indication: ASTHMA
     Dosage: 2 PUFF(S), BID
     Route: 055
     Dates: start: 201402
  3. ALBUTEROL NEBULIZER NEBULISER SOLUTION [Suspect]
     Active Substance: ALBUTEROL SULFATE
     Indication: PRODUCT USED FOR UNKNOWN INDICATION
     Dosage: UNK, U
     Route: 055
  4. OXYGEN. [Concomitant]
     Active Substance: OXYGEN

REACTIONS (10)
  - Vomiting [Unknown]
  - Dyspnoea [Unknown]
  - Wheezing [Unknown]
  - Cough [Unknown]
  - Drug administration error [Unknown]
  - Palpitations [Unknown]
  - Asthma [Unknown]
  - Bronchitis [Unknown]
  - Pain [Unknown]
  - Productive cough [Unknown]

NARRATIVE: CASE EVENT DATE: 201507
